FAERS Safety Report 4543332-9 (Version None)
Quarter: 2004Q4

REPORT INFORMATION
  Report Type: 
  Country: None (occurrence: None)
  Receive Date: 20041229
  Receipt Date: 20041214
  Transmission Date: 20050328
  Serious: Yes (Death)
  Sender: FDA-Public Use
  Company Number: DSA_25189_2004

PATIENT
  Age: 50 Year
  Sex: Male

DRUGS (2)
  1. TEVETEN [Suspect]
     Indication: HYPERTENSION
     Dosage: 600 MG Q DAY; PO
     Route: 048
     Dates: start: 20040702
  2. HYDRODIURIL [Concomitant]

REACTIONS (3)
  - ASPHYXIA [None]
  - ROAD TRAFFIC ACCIDENT [None]
  - THERMAL BURN [None]
